FAERS Safety Report 5104612-1 (Version None)
Quarter: 2006Q3

REPORT INFORMATION
  Report Type: 
  Country: None (occurrence: None)
  Receive Date: 20060914
  Receipt Date: 20060526
  Transmission Date: 20061208
  Serious: No
  Sender: FDA-Public Use
  Company Number: US-BRISTOL-MYERS SQUIBB COMPANY-13391602

PATIENT
  Age: 49 Year
  Sex: Female
  Weight: 83 kg

DRUGS (7)
  1. BUSPAR [Suspect]
  2. LUNESTA [Concomitant]
     Indication: INSOMNIA
  3. IPRATROPIUM BROMIDE [Concomitant]
  4. ALBUTEROL SULFATE [Concomitant]
  5. NORTRIPTYLINE HCL [Concomitant]
  6. LAMOTRIGINE [Concomitant]
  7. KLONOPIN [Concomitant]

REACTIONS (2)
  - MUSCLE TWITCHING [None]
  - PRURITUS [None]
